FAERS Safety Report 19885910 (Version 1)
Quarter: 2021Q3

REPORT INFORMATION
  Report Type: Spontaneous
  Country: CN (occurrence: CN)
  Receive Date: 20210927
  Receipt Date: 20210927
  Transmission Date: 20211014
  Serious: Yes (Hospitalization, Other)
  Sender: FDA-Public Use
  Company Number: CN-BAXTER-2021BAX029510

PATIENT
  Age: 66 Year
  Sex: Male
  Weight: 61 kg

DRUGS (20)
  1. DEXAMETHASONE SODIUM PHOSPHATE. [Suspect]
     Active Substance: DEXAMETHASONE SODIUM PHOSPHATE
     Dosage: DEXAMETHASONE SODIUM PHOSPHATE INJECTION + NS, DOSE RE?INTRODUCED
     Route: 041
  2. BORTEZOMIB. [Suspect]
     Active Substance: BORTEZOMIB
     Dosage: BORTEZOMIB FOR INJECTION 2.24 MG + NS 2.24ML, DOSE RE?INTRODUCED
     Route: 058
     Dates: start: 20210828, end: 20210828
  3. SODIUM CHLORIDE. [Suspect]
     Active Substance: SODIUM CHLORIDE
     Dosage: BORTEZOMIB FOR INJECTION 2.24 MG + NS 2.24ML
     Route: 058
     Dates: start: 20210820, end: 20210820
  4. SODIUM CHLORIDE. [Suspect]
     Active Substance: SODIUM CHLORIDE
     Dosage: DEXAMETHASONE SODIUM PHOSPHATE INJECTION 20 MG + NS 100ML
     Route: 041
     Dates: start: 20210817, end: 20210818
  5. BORTEZOMIB. [Suspect]
     Active Substance: BORTEZOMIB
     Dosage: BORTEZOMIB FOR INJECTION 2.24 MG + NS 2.24ML
     Route: 058
     Dates: start: 20210825, end: 20210825
  6. SODIUM CHLORIDE. [Suspect]
     Active Substance: SODIUM CHLORIDE
     Dosage: BORTEZOMIB FOR INJECTION 2.24 MG + NS 2.24ML, DOSE RE?INTRODUCED
     Route: 058
     Dates: start: 20210828, end: 20210828
  7. SODIUM CHLORIDE. [Suspect]
     Active Substance: SODIUM CHLORIDE
     Dosage: DEXAMETHASONE SODIUM PHOSPHATE INJECTION 20 MG + NS 100ML
     Route: 041
     Dates: start: 20210825, end: 20210829
  8. ENDOXAN [Suspect]
     Active Substance: CYCLOPHOSPHAMIDE
     Indication: PLASMA CELL MYELOMA
     Dosage: CYCLOPHOSPHAMIDE FOR INJECTION 0.5G + NS 250ML
     Route: 041
     Dates: start: 20210817, end: 20210817
  9. SODIUM CHLORIDE. [Suspect]
     Active Substance: SODIUM CHLORIDE
     Dosage: DEXAMETHASONE SODIUM PHOSPHATE INJECTION 20 MG + NS 100ML
     Route: 041
     Dates: start: 20210820, end: 20210821
  10. SODIUM CHLORIDE. [Suspect]
     Active Substance: SODIUM CHLORIDE
     Dosage: CYCLOPHOSPHAMIDE + NS, DOSE RE?INTRODUCED
     Route: 041
  11. BORTEZOMIB. [Suspect]
     Active Substance: BORTEZOMIB
     Indication: PLASMA CELL MYELOMA
     Dosage: BORTEZOMIB FOR INJECTION 2.24 MG + NS 2.24ML
     Route: 058
     Dates: start: 20210817, end: 20210817
  12. DEXAMETHASONE SODIUM PHOSPHATE. [Suspect]
     Active Substance: DEXAMETHASONE SODIUM PHOSPHATE
     Dosage: DEXAMETHASONE SODIUM PHOSPHATE INJECTION 20 MG + NS 100ML
     Route: 041
     Dates: start: 20210820, end: 20210821
  13. SODIUM CHLORIDE. [Suspect]
     Active Substance: SODIUM CHLORIDE
     Dosage: BORTEZOMIB FOR INJECTION 2.24 MG + NS 2.24ML
     Route: 058
     Dates: start: 20210817, end: 20210817
  14. SODIUM CHLORIDE. [Suspect]
     Active Substance: SODIUM CHLORIDE
     Dosage: BORTEZOMIB FOR INJECTION 2.24 MG + NS 2.24ML
     Route: 058
     Dates: start: 20210825, end: 20210825
  15. SODIUM CHLORIDE. [Suspect]
     Active Substance: SODIUM CHLORIDE
     Dosage: DEXAMETHASONE SODIUM PHOSPHATE INJECTION + NS, DOSE RE?INTRODUCED
     Route: 041
  16. ENDOXAN [Suspect]
     Active Substance: CYCLOPHOSPHAMIDE
     Dosage: CYCLOPHOSPHAMIDE + NS, DOSE RE?INTRODUCED
     Route: 041
  17. SODIUM CHLORIDE. [Suspect]
     Active Substance: SODIUM CHLORIDE
     Indication: MEDICATION DILUTION
     Dosage: CYCLOPHOSPHAMIDE FOR INJECTION 0.5G + NS 250ML
     Route: 041
     Dates: start: 20210817, end: 20210817
  18. BORTEZOMIB. [Suspect]
     Active Substance: BORTEZOMIB
     Dosage: BORTEZOMIB FOR INJECTION 2.24 MG + NS 2.24ML
     Route: 058
     Dates: start: 20210820, end: 20210820
  19. DEXAMETHASONE SODIUM PHOSPHATE. [Suspect]
     Active Substance: DEXAMETHASONE SODIUM PHOSPHATE
     Indication: PLASMA CELL MYELOMA
     Dosage: DEXAMETHASONE SODIUM PHOSPHATE INJECTION 20 MG + NS 100ML
     Route: 041
     Dates: start: 20210817, end: 20210818
  20. DEXAMETHASONE SODIUM PHOSPHATE. [Suspect]
     Active Substance: DEXAMETHASONE SODIUM PHOSPHATE
     Dosage: DEXAMETHASONE SODIUM PHOSPHATE INJECTION 20 MG + NS 100ML
     Route: 041
     Dates: start: 20210825, end: 20210829

REACTIONS (1)
  - Blood calcium decreased [Recovering/Resolving]

NARRATIVE: CASE EVENT DATE: 20210825
